FAERS Safety Report 19132966 (Version 1)
Quarter: 2021Q2

REPORT INFORMATION
  Report Type: Spontaneous
  Country: US (occurrence: US)
  Receive Date: 20210413
  Receipt Date: 20210413
  Transmission Date: 20210717
  Serious: Yes (Disabling)
  Sender: FDA-Public Use
  Company Number: None

PATIENT
  Age: 51 Year
  Sex: Female
  Weight: 74.25 kg

DRUGS (3)
  1. AMBIEN [Concomitant]
     Active Substance: ZOLPIDEM TARTRATE
  2. CIPRO [Suspect]
     Active Substance: CIPROFLOXACIN HYDROCHLORIDE
     Indication: URINARY TRACT INFECTION
     Dosage: ?          QUANTITY:1 TABLET(S);?
     Route: 048
     Dates: start: 20200622, end: 20200624
  3. IMITREX [Concomitant]
     Active Substance: SUMATRIPTAN SUCCINATE

REACTIONS (21)
  - Groin pain [None]
  - Depressed mood [None]
  - Formication [None]
  - Peripheral swelling [None]
  - Arthralgia [None]
  - Vitreous floaters [None]
  - Hypoaesthesia [None]
  - Muscle twitching [None]
  - Muscle strain [None]
  - Stomatitis [None]
  - Alopecia [None]
  - Loss of personal independence in daily activities [None]
  - Tendon pain [None]
  - Tinnitus [None]
  - Bedridden [None]
  - Tendon rupture [None]
  - Muscle spasms [None]
  - Crying [None]
  - Visual impairment [None]
  - Peripheral coldness [None]
  - Migraine [None]

NARRATIVE: CASE EVENT DATE: 20200624
